FAERS Safety Report 25676581 (Version 4)
Quarter: 2025Q4

REPORT INFORMATION
  Report Type: Spontaneous
  Country: KR (occurrence: KR)
  Receive Date: 20250813
  Receipt Date: 20251020
  Transmission Date: 20260117
  Serious: Yes (Hospitalization, Other)
  Sender: PFIZER
  Company Number: KR-BRISTOL-MYERS SQUIBB COMPANY-2025-109026

PATIENT
  Sex: Female
  Weight: 61.2 kg

DRUGS (31)
  1. APIXABAN [Suspect]
     Active Substance: APIXABAN
     Indication: Venous thrombosis
     Dosage: 5 MG
     Route: 048
     Dates: start: 20250624
  2. APIXABAN [Suspect]
     Active Substance: APIXABAN
     Dosage: 2.5 MG, 2X/DAY
     Route: 048
     Dates: start: 20250702
  3. PACLITAXEL [Suspect]
     Active Substance: PACLITAXEL
     Indication: Endometrial cancer
     Dosage: 128 MG
     Route: 042
     Dates: start: 20250401, end: 20250401
  4. PACLITAXEL [Suspect]
     Active Substance: PACLITAXEL
     Dosage: 128 MG
     Route: 042
     Dates: start: 20250408, end: 20250408
  5. PACLITAXEL [Suspect]
     Active Substance: PACLITAXEL
     Dosage: 128 MG
     Route: 042
     Dates: start: 20250429, end: 20250429
  6. PACLITAXEL [Suspect]
     Active Substance: PACLITAXEL
     Dosage: 128 MG
     Route: 042
     Dates: start: 20250507, end: 20250507
  7. PACLITAXEL [Suspect]
     Active Substance: PACLITAXEL
     Dosage: 128 MG
     Route: 042
     Dates: start: 20250514, end: 20250514
  8. PACLITAXEL [Suspect]
     Active Substance: PACLITAXEL
     Dosage: 128 MG
     Route: 042
     Dates: start: 20250526, end: 20250526
  9. PACLITAXEL [Suspect]
     Active Substance: PACLITAXEL
     Dosage: 128 MG
     Route: 042
     Dates: start: 20250602, end: 20250602
  10. PACLITAXEL [Suspect]
     Active Substance: PACLITAXEL
     Dosage: 128 MG
     Route: 042
     Dates: start: 20250610, end: 20250610
  11. PACLITAXEL [Suspect]
     Active Substance: PACLITAXEL
     Dosage: 128 MG
     Route: 042
     Dates: start: 20250624, end: 20250624
  12. PACLITAXEL [Suspect]
     Active Substance: PACLITAXEL
     Dosage: 128 MG
     Route: 042
     Dates: start: 20250701, end: 20250701
  13. PACLITAXEL [Suspect]
     Active Substance: PACLITAXEL
     Dosage: 128 MG
     Route: 042
     Dates: start: 20250708, end: 20250708
  14. ROSUVASTATIN [Concomitant]
     Active Substance: ROSUVASTATIN
     Dosage: UNK
     Dates: start: 2013
  15. CALCIUM CARBONATE\CHOLECALCIFEROL [Concomitant]
     Active Substance: CALCIUM CARBONATE\CHOLECALCIFEROL
     Dosage: UNK
     Dates: start: 2019
  16. ERDOMIN [Concomitant]
     Dosage: UNK
     Dates: start: 20250619, end: 20250623
  17. FEXOFENADINE HYDROCHLORIDE [Concomitant]
     Active Substance: FEXOFENADINE HYDROCHLORIDE
     Dosage: UNK
     Dates: start: 20250619, end: 20250623
  18. LEVODROPROPIZINE [Concomitant]
     Active Substance: LEVODROPROPIZINE
     Dosage: UNK
     Dates: start: 20250619, end: 20250623
  19. CHLORPHENIRAMINE MALEATE [Concomitant]
     Active Substance: CHLORPHENIRAMINE MALEATE
     Dosage: UNK
     Dates: start: 20250624, end: 20250708
  20. DEXAMETHASONE SODIUM PHOSPHATE [Concomitant]
     Active Substance: DEXAMETHASONE SODIUM PHOSPHATE
     Dosage: UNK
     Dates: start: 20250624, end: 20250708
  21. HEPARIN SODIUM [Concomitant]
     Active Substance: HEPARIN SODIUM
     Dosage: UNK
     Dates: start: 20250624, end: 20250708
  22. GASTER [Concomitant]
     Active Substance: FAMOTIDINE
     Dosage: UNK
     Dates: start: 20250624, end: 20250708
  23. ONDANSETRON [Concomitant]
     Active Substance: ONDANSETRON
     Dosage: UNK
     Dates: start: 20250625, end: 20250706
  24. NEUPOGEN [Concomitant]
     Active Substance: FILGRASTIM
     Dosage: UNK
     Dates: start: 20250625, end: 20250625
  25. DEXAMETHASONE [Concomitant]
     Active Substance: DEXAMETHASONE
     Dosage: UNK
     Dates: start: 20250625, end: 20250704
  26. LEVOKACIN [Concomitant]
     Dosage: UNK
     Dates: start: 20250624, end: 20250630
  27. MONUROL [Concomitant]
     Active Substance: FOSFOMYCIN TROMETHAMINE
     Dosage: UNK
     Dates: start: 20250623, end: 20250623
  28. TYLENOL 8HR [Concomitant]
     Active Substance: ACETAMINOPHEN
     Dosage: UNK
     Dates: start: 20250619, end: 20250623
  29. NP COUGH [Concomitant]
     Dosage: UNK
     Dates: start: 20250619, end: 20250623
  30. MOMETASONE FUROATE [Concomitant]
     Active Substance: MOMETASONE FUROATE
     Dosage: UNK
     Dates: start: 20250619, end: 20250623
  31. AMOCLA DUO [Concomitant]
     Dosage: UNK
     Dates: start: 20250619, end: 20250623

REACTIONS (4)
  - Anaemia [Recovered/Resolved]
  - Haematuria [Unknown]
  - Peripheral vein thrombosis [Not Recovered/Not Resolved]
  - Disease progression [Not Recovered/Not Resolved]

NARRATIVE: CASE EVENT DATE: 20250722
